FAERS Safety Report 20088412 (Version 1)
Quarter: 2021Q4

REPORT INFORMATION
  Report Type: Spontaneous
  Country: US (occurrence: US)
  Receive Date: 20211118
  Receipt Date: 20211118
  Transmission Date: 20220303
  Serious: Yes (Other)
  Sender: FDA-Public Use
  Company Number: US-ALMIRALL, LLC-2021AQU000524

PATIENT

DRUGS (1)
  1. SEYSARA [Suspect]
     Active Substance: SARECYCLINE HYDROCHLORIDE
     Indication: Acne cystic
     Dosage: 60 MG, UNK
     Route: 048
     Dates: start: 2020

REACTIONS (1)
  - Coeliac disease [Unknown]
